FAERS Safety Report 16938963 (Version 11)
Quarter: 2020Q4

REPORT INFORMATION
  Report Type: Report from Study
  Country: DO (occurrence: DO)
  Receive Date: 20191020
  Receipt Date: 20201125
  Transmission Date: 20210113
  Serious: Yes (Hospitalization, Other)
  Sender: FDA-Public Use
  Company Number: PHHY2017DO109741

PATIENT
  Age: 48 Year
  Sex: Female

DRUGS (7)
  1. GILENYA [Suspect]
     Active Substance: FINGOLIMOD HYDROCHLORIDE
     Dosage: 0.5 MG, QD
     Route: 048
     Dates: start: 20170724
  2. GILENYA [Suspect]
     Active Substance: FINGOLIMOD HYDROCHLORIDE
     Dosage: 0.5 MG, QD
     Route: 048
     Dates: start: 20190724
  3. GILENYA [Suspect]
     Active Substance: FINGOLIMOD HYDROCHLORIDE
     Dosage: UNK
     Route: 065
     Dates: start: 20171027
  4. VITAMIN C [Concomitant]
     Active Substance: ASCORBIC ACID
     Indication: PRODUCT USED FOR UNKNOWN INDICATION
     Dosage: UNK
     Route: 065
  5. PREDNISONE. [Suspect]
     Active Substance: PREDNISONE
     Indication: PRODUCT USED FOR UNKNOWN INDICATION
     Dosage: UNK
     Route: 065
  6. GILENYA [Suspect]
     Active Substance: FINGOLIMOD HYDROCHLORIDE
     Indication: RELAPSING-REMITTING MULTIPLE SCLEROSIS
     Dosage: 0.5 MG, QD
     Route: 048
     Dates: start: 20170704
  7. GILENYA [Suspect]
     Active Substance: FINGOLIMOD HYDROCHLORIDE
     Dosage: 0.5 MG, QD
     Route: 048
     Dates: start: 20170724

REACTIONS (37)
  - Pain in extremity [Recovering/Resolving]
  - Weight increased [Unknown]
  - Oedema peripheral [Unknown]
  - Pain in extremity [Recovered/Resolved]
  - Neck pain [Unknown]
  - Hemiparesis [Unknown]
  - Weight decreased [Unknown]
  - Headache [Unknown]
  - Back pain [Unknown]
  - Malaise [Unknown]
  - Arthralgia [Unknown]
  - Back pain [Recovered/Resolved]
  - Hypoaesthesia [Unknown]
  - Visual impairment [Unknown]
  - Stress [Unknown]
  - Myalgia [Unknown]
  - Dysstasia [Recovering/Resolving]
  - Influenza [Unknown]
  - Pharyngeal swelling [Unknown]
  - Myopia [Unknown]
  - Confusional state [Unknown]
  - Spinal disorder [Recovering/Resolving]
  - Limb discomfort [Unknown]
  - Joint stiffness [Unknown]
  - Fatigue [Unknown]
  - Peripheral swelling [Recovering/Resolving]
  - Inflammation [Unknown]
  - Spinal pain [Unknown]
  - Pyrexia [Unknown]
  - Vision blurred [Unknown]
  - Multiple sclerosis relapse [Unknown]
  - Hemianaesthesia [Unknown]
  - Oropharyngeal pain [Unknown]
  - Pain [Not Recovered/Not Resolved]
  - Thyroid disorder [Unknown]
  - Heart rate decreased [Unknown]
  - Urticaria [Unknown]

NARRATIVE: CASE EVENT DATE: 20170724
